FAERS Safety Report 24757678 (Version 3)
Quarter: 2025Q1

REPORT INFORMATION
  Report Type: Spontaneous
  Country: US (occurrence: US)
  Receive Date: 20241220
  Receipt Date: 20250303
  Transmission Date: 20250408
  Serious: Yes (Life-Threatening, Hospitalization, Other)
  Sender: PHARMACOSMOS A/S
  Company Number: US-NEBO-682641

PATIENT
  Age: 79 Year
  Sex: Male
  Weight: 117 kg

DRUGS (2)
  1. MONOFERRIC [Suspect]
     Active Substance: FERRIC DERISOMALTOSE
     Indication: Iron deficiency anaemia
     Dates: start: 20241211, end: 20241211
  2. SOLU-MEDROL [Concomitant]
     Active Substance: METHYLPREDNISOLONE SODIUM SUCCINATE
     Indication: Premedication
     Dates: start: 20241211, end: 20241211

REACTIONS (1)
  - Cardiovascular symptom [Recovered/Resolved]

NARRATIVE: CASE EVENT DATE: 20241211
